FAERS Safety Report 14321326 (Version 2)
Quarter: 2018Q1

REPORT INFORMATION
  Report Type: Report from Study
  Country: MY (occurrence: MY)
  Receive Date: 20171223
  Receipt Date: 20180108
  Transmission Date: 20180509
  Serious: Yes (Life-Threatening, Hospitalization, Other)
  Sender: FDA-Public Use
  Company Number: PHHY2017MY187719

PATIENT
  Sex: Female

DRUGS (6)
  1. AP CALCIUM LACTATE [Concomitant]
     Indication: PRODUCT USED FOR UNKNOWN INDICATION
     Dosage: 600 MG, QD
     Route: 065
  2. GLIVEC [Suspect]
     Active Substance: IMATINIB MESYLATE
     Indication: CHRONIC MYELOID LEUKAEMIA
     Dosage: 400 MG, UNK
     Route: 065
     Dates: start: 20120515
  3. GLIVEC [Suspect]
     Active Substance: IMATINIB MESYLATE
     Dosage: DOSE REDUCED DUE TO NAUSEA
     Route: 065
  4. TELMISARTAN. [Concomitant]
     Active Substance: TELMISARTAN
     Indication: HYPERTENSION
     Dosage: 40 MG, QD
     Route: 065
     Dates: end: 20171222
  5. GLIVEC [Suspect]
     Active Substance: IMATINIB MESYLATE
     Dosage: INCREASED BACK GRADUALLY
     Route: 065
  6. OMEPRAZOLE. [Concomitant]
     Active Substance: OMEPRAZOLE
     Indication: PRODUCT USED FOR UNKNOWN INDICATION
     Dosage: 20 MG, PRN
     Route: 065

REACTIONS (5)
  - Adenocarcinoma of colon [Recovered/Resolved]
  - Nausea [Unknown]
  - Metastases to liver [Unknown]
  - Rectal tenesmus [Unknown]
  - Second primary malignancy [Recovered/Resolved]
